FAERS Safety Report 8546441-2 (Version None)
Quarter: 2012Q3

REPORT INFORMATION
  Report Type: 
  Country: None (occurrence: None)
  Receive Date: 20120727
  Receipt Date: 20120121
  Transmission Date: 20120928
  Serious: No
  Sender: FDA-Public Use
  Company Number: US-ASTRAZENECA-2012SE01807

PATIENT
  Age: 66 Year
  Sex: Female
  Weight: 86.2 kg

DRUGS (11)
  1. SEROQUEL [Suspect]
     Indication: INSOMNIA
     Route: 048
  2. XANAX [Concomitant]
     Indication: ANXIETY
  3. CRESTOR [Concomitant]
     Indication: BLOOD CHOLESTEROL INCREASED
  4. GLUCOTROL [Concomitant]
  5. LOSARTAN POTASSIUM [Concomitant]
     Indication: HYPERTENSION
  6. VITAMIN TAB [Concomitant]
  7. COREG [Concomitant]
  8. SEROQUEL [Suspect]
     Route: 048
     Dates: start: 20070121, end: 20120119
  9. LANTUS [Concomitant]
  10. LASIX [Concomitant]
  11. NEURONTIN [Concomitant]

REACTIONS (17)
  - ORAL PAIN [None]
  - NAUSEA [None]
  - SOMNAMBULISM [None]
  - DRUG DOSE OMISSION [None]
  - SLEEP DISORDER DUE TO GENERAL MEDICAL CONDITION, HYPERSOMNIA TYPE [None]
  - DIZZINESS [None]
  - VOMITING [None]
  - DIARRHOEA [None]
  - INSOMNIA [None]
  - DYSPNOEA [None]
  - GLOSSODYNIA [None]
  - WITHDRAWAL SYNDROME [None]
  - FALL [None]
  - IRRITABILITY [None]
  - HEADACHE [None]
  - ORAL DISCOMFORT [None]
  - OFF LABEL USE [None]
